FAERS Safety Report 4546342-0 (Version None)
Quarter: 2005Q1

REPORT INFORMATION
  Report Type: 
  Country: None (occurrence: None)
  Receive Date: 20050103
  Receipt Date: 20041221
  Transmission Date: 20050727
  Serious: Yes (Hospitalization)
  Sender: FDA-Public Use
  Company Number: 2004118147

PATIENT
  Age: 42 Year
  Sex: Male

DRUGS (11)
  1. HEPARIN SODIUM [Suspect]
     Indication: ILL-DEFINED DISORDER
     Dosage: 40 MG (DAILY), SUBCUTANEOUS
     Route: 058
     Dates: start: 20041015, end: 20041115
  2. RIFAMPICIN [Suspect]
     Indication: ILL-DEFINED DISORDER
     Dosage: 1200 MG (DAILY), ORAL
     Route: 048
     Dates: start: 20041101, end: 20041122
  3. TRAMADOL HCL [Suspect]
     Indication: ILL-DEFINED DISORDER
     Dosage: 200 MG (DAILY), ORAL
     Route: 048
     Dates: start: 20041114, end: 20041122
  4. FLOCTAFENINE (FLOCTANFENINE) [Suspect]
     Indication: ILL-DEFINED DISORDER
     Dosage: 200 MG (DAILY), ORAL
     Route: 048
     Dates: start: 20041023, end: 20041023
  5. VANCOMYCON HYDROCHLORIDE (VANCOMYCIN HYDROCHLORIDE) [Concomitant]
  6. HEPARIN CALCIUM [Concomitant]
  7. GLIMEPIRIDE [Concomitant]
  8. HYDROXYZINE HCL [Concomitant]
  9. ECONAZOLE NITRATE [Concomitant]
  10. MACROGOL (MACROGOL) [Concomitant]
  11. CLINDAMYCIN HYDROCHLORIDE [Concomitant]

REACTIONS (2)
  - CYTOLYTIC HEPATITIS [None]
  - EOSINOPHILIA [None]
